FAERS Safety Report 16898580 (Version 1)
Quarter: 2019Q4

REPORT INFORMATION
  Report Type: Spontaneous
  Country: US (occurrence: US)
  Receive Date: 20191009
  Receipt Date: 20191009
  Transmission Date: 20200122
  Serious: No
  Sender: FDA-Public Use
  Company Number: US-009507513-1910USA006691

PATIENT
  Sex: Female

DRUGS (2)
  1. PROZAC [Concomitant]
     Active Substance: FLUOXETINE HYDROCHLORIDE
     Dosage: UNK
  2. COZAAR [Suspect]
     Active Substance: LOSARTAN POTASSIUM
     Indication: HYPERTENSION
     Dosage: UNK UNK, ONCE A DAY
     Route: 048
     Dates: start: 2004

REACTIONS (3)
  - Pain [Not Recovered/Not Resolved]
  - Thyroid hormones increased [Unknown]
  - Thyroid disorder [Unknown]

NARRATIVE: CASE EVENT DATE: 2018
